FAERS Safety Report 5614691-0 (Version None)
Quarter: 2008Q1

REPORT INFORMATION
  Report Type: 
  Country: None (occurrence: None)
  Receive Date: 20080131
  Receipt Date: 20080115
  Transmission Date: 20080703
  Serious: Yes (Hospitalization)
  Sender: FDA-Public Use
  Company Number: DSA_31326_2008

PATIENT
  Sex: Female

DRUGS (5)
  1. ATIVAN [Suspect]
     Indication: DRUG USE FOR UNKNOWN INDICATION
     Dosage: (60 DF 1X NOT THE PRESCRIBED AMOUNT. ORAL), (DF ORAL)
     Route: 048
     Dates: start: 20060629, end: 20060629
  2. REBIF [Suspect]
     Indication: MULTIPLE SCLEROSIS
     Dosage: (44 UG 3X/WEEK SUBCUTANEOUS)
     Route: 058
     Dates: start: 20030101, end: 20060901
  3. CYMBALTA [Concomitant]
  4. KLONOPIN [Concomitant]
  5. LYRICA [Concomitant]

REACTIONS (4)
  - SKIN LACERATION [None]
  - SUICIDAL IDEATION [None]
  - SUICIDE ATTEMPT [None]
  - THYROID FUNCTION TEST ABNORMAL [None]
